FAERS Safety Report 9495281 (Version 3)
Quarter: 2013Q3

REPORT INFORMATION
  Report Type: Report from Study
  Country: CA (occurrence: CA)
  Receive Date: 20130903
  Receipt Date: 20130913
  Transmission Date: 20140515
  Serious: Yes (Hospitalization)
  Sender: FDA-Public Use
  Company Number: CA-ABBOTT-13P-028-1141164-00

PATIENT
  Age: 70 Year
  Sex: Female
  Weight: 56.7 kg

DRUGS (2)
  1. HUMIRA [Suspect]
     Indication: PSORIATIC ARTHROPATHY
     Dosage: DOSE OF THE 17 DELAYED TO AUGUST 23.
     Route: 058
     Dates: start: 20130803
  2. COUMADIN [Concomitant]
     Indication: ATRIAL FIBRILLATION
     Dosage: DIE
     Route: 048

REACTIONS (1)
  - Iron deficiency anaemia [Not Recovered/Not Resolved]
